FAERS Safety Report 18410112 (Version 1)
Quarter: 2020Q4

REPORT INFORMATION
  Report Type: Report from Study
  Country: None (occurrence: US)
  Receive Date: 20201021
  Receipt Date: 20201021
  Transmission Date: 20210114
  Serious: Yes (Hospitalization, Other)
  Sender: FDA-Public Use
  Company Number: US-ABBVIE-20K-163-3454923-00

PATIENT
  Age: 31 Year
  Sex: Female

DRUGS (3)
  1. MERCAPTOPURINE. [Concomitant]
     Active Substance: MERCAPTOPURINE
     Indication: COLITIS ULCERATIVE
  2. HUMIRA [Suspect]
     Active Substance: ADALIMUMAB
     Indication: PRODUCT USED FOR UNKNOWN INDICATION
     Route: 058
     Dates: start: 2017
  3. HUMIRA [Suspect]
     Active Substance: ADALIMUMAB
     Route: 058

REACTIONS (9)
  - Abdominal pain [Unknown]
  - Frequent bowel movements [Unknown]
  - Anal incontinence [Recovering/Resolving]
  - Therapeutic product effect decreased [Unknown]
  - Loop electrosurgical excision procedure [Unknown]
  - Rectal haemorrhage [Unknown]
  - Skin erosion [Unknown]
  - Colectomy [Unknown]
  - Anal fissure [Not Recovered/Not Resolved]

NARRATIVE: CASE EVENT DATE: 201701
